FAERS Safety Report 8778539 (Version 1)
Quarter: 2012Q4

REPORT INFORMATION
  Report Type: 
  Country: GB (occurrence: GB)
  Receive Date: 20120912
  Receipt Date: 20120912
  Transmission Date: 20130627
  Serious: No
  Sender: FDA-Public Use
  Company Number: GB-GLAXOSMITHKLINE-B0828539A

PATIENT
  Sex: Female

DRUGS (2)
  1. NIQUITIN [Suspect]
     Indication: PRODUCT USED FOR UNKNOWN INDICATION
     Route: 002
  2. NIQUITIN [Suspect]
     Indication: PRODUCT USED FOR UNKNOWN INDICATION
     Route: 002

REACTIONS (2)
  - Nicotine dependence [Not Recovered/Not Resolved]
  - Intentional drug misuse [Unknown]
